FAERS Safety Report 4635366-0 (Version None)
Quarter: 2005Q2

REPORT INFORMATION
  Report Type: 
  Country: None (occurrence: None)
  Receive Date: 20050414
  Receipt Date: 20050331
  Transmission Date: 20051028
  Serious: Yes (Other)
  Sender: FDA-Public Use
  Company Number: 2005052918

PATIENT
  Age: 88 Year
  Sex: Female
  Weight: 53.5244 kg

DRUGS (6)
  1. DETROL LA [Suspect]
     Indication: POLLAKIURIA
     Dosage: 4 MG (4 MG, 1 IN 1 D), ORAL
     Route: 048
     Dates: start: 20040101
  2. CARVEDILOL [Concomitant]
  3. CALCIUM GLUCONATE [Concomitant]
  4. CENTRUM SILVER (ASCORBIC ACID, CALCIUM, MINERALS NOS, RETINAOL, TOCOPH [Concomitant]
  5. ACETYL SALICYLIC ACID USP BAT [Concomitant]
  6. RALOXIFENE HCL [Concomitant]

REACTIONS (4)
  - AMNESIA [None]
  - BODY HEIGHT DECREASED [None]
  - DRUG INEFFECTIVE [None]
  - WEIGHT DECREASED [None]
